FAERS Safety Report 4735603-8 (Version None)
Quarter: 2005Q3

REPORT INFORMATION
  Report Type: 
  Country: None (occurrence: None)
  Receive Date: 20050803
  Receipt Date: 20050715
  Transmission Date: 20060218
  Serious: Yes (Other)
  Sender: FDA-Public Use
  Company Number: USA0507102912

PATIENT
  Age: 82 Year
  Sex: Male

DRUGS (2)
  1. XIGRIS [Suspect]
     Indication: SEPTIC SHOCK
     Dosage: 24 UG/KR/HR
     Dates: start: 20050715, end: 20050716
  2. NOREPINEPHIRINE BITARTRATE [Concomitant]

REACTIONS (3)
  - DISEASE RECURRENCE [None]
  - SEPTIC SHOCK [None]
  - SURGICAL PROCEDURE REPEATED [None]
